FAERS Safety Report 15163483 (Version 1)
Quarter: 2018Q3

REPORT INFORMATION
  Report Type: Spontaneous
  Country: DE (occurrence: DE)
  Receive Date: 20180719
  Receipt Date: 20180719
  Transmission Date: 20181010
  Serious: No
  Sender: FDA-Public Use
  Company Number: DE-ROCHE-2155994

PATIENT
  Sex: Male

DRUGS (1)
  1. OCREVUS [Suspect]
     Active Substance: OCRELIZUMAB
     Indication: PRODUCT USED FOR UNKNOWN INDICATION
     Route: 065
     Dates: start: 201806

REACTIONS (4)
  - Nasopharyngitis [Unknown]
  - Gastrointestinal infection [Unknown]
  - Oropharyngeal pain [Unknown]
  - Infection [Unknown]
